FAERS Safety Report 20614623 (Version 1)
Quarter: 2022Q1

REPORT INFORMATION
  Report Type: Spontaneous
  Country: FR (occurrence: FR)
  Receive Date: 20220321
  Receipt Date: 20220321
  Transmission Date: 20220423
  Serious: Yes (Other)
  Sender: FDA-Public Use
  Company Number: FR-AFSSAPS-GR20220700

PATIENT
  Age: 48 Year
  Sex: Female

DRUGS (1)
  1. MELATONIN [Suspect]
     Active Substance: MELATONIN
     Indication: Sleep disorder
     Dosage: 4 MILLIGRAM
     Route: 048
     Dates: start: 20211002, end: 20211006

REACTIONS (1)
  - Petit mal epilepsy [Not Recovered/Not Resolved]

NARRATIVE: CASE EVENT DATE: 20211003
